FAERS Safety Report 24454392 (Version 2)
Quarter: 2024Q4

REPORT INFORMATION
  Report Type: Report from Study
  Country: JP (occurrence: JP)
  Receive Date: 20241017
  Receipt Date: 20241018
  Transmission Date: 20250115
  Serious: No
  Sender: ROCHE
  Company Number: JP-ROCHE-3455213

PATIENT
  Age: 46 Year
  Sex: Female
  Weight: 67.0 kg

DRUGS (18)
  1. RITUXAN [Suspect]
     Active Substance: RITUXIMAB
     Indication: Systemic scleroderma
     Route: 041
     Dates: start: 20221116, end: 20221116
  2. RITUXAN [Suspect]
     Active Substance: RITUXIMAB
     Route: 041
     Dates: start: 20221129, end: 20221129
  3. RITUXAN [Suspect]
     Active Substance: RITUXIMAB
     Route: 041
     Dates: start: 20221206, end: 20221206
  4. RITUXAN [Suspect]
     Active Substance: RITUXIMAB
     Route: 041
     Dates: start: 20221213, end: 20221213
  5. BUFFERIN (JAPAN) [Concomitant]
     Indication: Systemic scleroderma
     Route: 048
  6. NIFEDIPINE [Concomitant]
     Active Substance: NIFEDIPINE
     Indication: Systemic scleroderma
     Route: 048
  7. ENALAPRIL [Concomitant]
     Active Substance: ENALAPRIL
     Indication: Systemic scleroderma
     Route: 048
  8. LOXOPROFEN [Concomitant]
     Active Substance: LOXOPROFEN
     Indication: Systemic scleroderma
     Route: 048
  9. ACETAMINOPHEN\TRAMADOL HYDROCHLORIDE [Concomitant]
     Active Substance: ACETAMINOPHEN\TRAMADOL HYDROCHLORIDE
     Indication: Systemic scleroderma
     Route: 048
  10. SILVER SULFADIAZINE [Concomitant]
     Active Substance: SILVER SULFADIAZINE
     Indication: Systemic scleroderma
     Route: 062
     Dates: end: 20220719
  11. BERAPROST [Concomitant]
     Active Substance: BERAPROST
     Indication: Systemic scleroderma
     Route: 048
  12. OMEPRAZOLE [Concomitant]
     Active Substance: OMEPRAZOLE
     Indication: Systemic scleroderma
     Dates: start: 20211206
  13. TRACLEER [Concomitant]
     Active Substance: BOSENTAN
     Indication: Systemic scleroderma
     Route: 048
  14. VONOPRAZAN FUMARATE [Concomitant]
     Active Substance: VONOPRAZAN FUMARATE
     Indication: Systemic scleroderma
     Route: 048
     Dates: start: 20211206
  15. ALLOID G [Concomitant]
     Active Substance: SODIUM ALGINATE
     Indication: Systemic scleroderma
     Route: 048
     Dates: start: 20220328
  16. RINDERON VG [Concomitant]
     Active Substance: BETAMETHASONE VALERATE\GENTAMICIN SULFATE
     Indication: Systemic scleroderma
     Route: 062
     Dates: start: 20220404, end: 20220719
  17. PROSTANDIN [Concomitant]
     Indication: Systemic scleroderma
     Route: 062
     Dates: start: 20220727, end: 20220804
  18. FERROUS SULFATE [Concomitant]
     Active Substance: FERROUS SULFATE
     Route: 048

REACTIONS (3)
  - Herpes zoster [Unknown]
  - Infusion related reaction [Recovered/Resolved]
  - Dizziness [Recovered/Resolved]

NARRATIVE: CASE EVENT DATE: 20221116
